FAERS Safety Report 4471448-4 (Version None)
Quarter: 2004Q4

REPORT INFORMATION
  Report Type: 
  Country: None (occurrence: None)
  Receive Date: 20041007
  Receipt Date: 20041007
  Transmission Date: 20050328
  Serious: Yes (Hospitalization)
  Sender: FDA-Public Use
  Company Number: None

PATIENT
  Age: 56 Year
  Sex: Female
  Weight: 70.7611 kg

DRUGS (5)
  1. AUGMENTIN '125' [Suspect]
     Indication: EAR INFECTION
     Dates: start: 20040405, end: 20040429
  2. PREDNISONE [Concomitant]
  3. ZOLOFT [Concomitant]
  4. PLAQUENIL [Concomitant]
  5. VALTREX [Concomitant]

REACTIONS (5)
  - DRUG ERUPTION [None]
  - PAIN [None]
  - PARAESTHESIA [None]
  - RASH ERYTHEMATOUS [None]
  - SWELLING [None]
